FAERS Safety Report 6429543-6 (Version None)
Quarter: 2009Q4

REPORT INFORMATION
  Report Type: 
  Country: None (occurrence: None)
  Receive Date: 20091102
  Receipt Date: 20091021
  Transmission Date: 20100525
  Serious: Yes (Other)
  Sender: FDA-Public Use
  Company Number: 1-20485924

PATIENT
  Sex: Male
  Weight: 90.7194 kg

DRUGS (8)
  1. FENTANYL-75 [Suspect]
     Indication: PAIN
     Dosage: 75 MCG/HR EVERY 48 HR, TRANSDERMAL
     Route: 062
     Dates: start: 20091005, end: 20091021
  2. LORTAB [Concomitant]
  3. XANAX [Concomitant]
  4. GABAPENTIN [Concomitant]
  5. VITAMIN D [Concomitant]
  6. ASCORBIC ACID [Concomitant]
  7. SLOW NIACIN [Concomitant]
  8. BISOPROLOL FUMARATE [Concomitant]

REACTIONS (16)
  - APPLICATION SITE IRRITATION [None]
  - APPLICATION SITE WARMTH [None]
  - BLOOD TESTOSTERONE DECREASED [None]
  - CAUSTIC INJURY [None]
  - DEVICE LEAKAGE [None]
  - DIZZINESS [None]
  - FALL [None]
  - FEELING COLD [None]
  - HYPERHIDROSIS [None]
  - LOSS OF CONSCIOUSNESS [None]
  - NAUSEA [None]
  - PRODUCT SUBSTITUTION ISSUE [None]
  - PYREXIA [None]
  - RETCHING [None]
  - SOMNOLENCE [None]
  - VOMITING [None]
